FAERS Safety Report 4382258-0 (Version None)
Quarter: 2004Q2

REPORT INFORMATION
  Report Type: 
  Country: None (occurrence: None)
  Receive Date: 20040616
  Receipt Date: 20040602
  Transmission Date: 20050107
  Serious: No
  Sender: FDA-Public Use
  Company Number: A01200402573

PATIENT
  Sex: Male

DRUGS (3)
  1. (ZOLPIDEM) - TABLET - 10 MG [Suspect]
     Dosage: 10 MG
     Route: 048
     Dates: start: 20040401, end: 20040519
  2. CISPLATIN [Concomitant]
  3. TAXOTERE [Concomitant]

REACTIONS (3)
  - ABNORMAL BEHAVIOUR [None]
  - DELIRIUM [None]
  - MEMORY IMPAIRMENT [None]
